FAERS Safety Report 7592740-0 (Version None)
Quarter: 2011Q3

REPORT INFORMATION
  Report Type: 
  Country: None (occurrence: None)
  Receive Date: 20110706
  Receipt Date: 20110630
  Transmission Date: 20111222
  Serious: No
  Sender: FDA-Public Use
  Company Number: US-PFIZER INC-2011146987

PATIENT
  Sex: Female
  Weight: 34.014 kg

DRUGS (1)
  1. CHILDREN'S ADVIL [Suspect]
     Indication: PYREXIA
     Dosage: UNK
     Route: 048
     Dates: start: 20110623, end: 20110628

REACTIONS (7)
  - ILL-DEFINED DISORDER [None]
  - DIARRHOEA [None]
  - ABDOMINAL DISCOMFORT [None]
  - FLUID INTAKE REDUCED [None]
  - FATIGUE [None]
  - ABDOMINAL PAIN UPPER [None]
  - DECREASED APPETITE [None]
